FAERS Safety Report 6937632-2 (Version None)
Quarter: 2010Q3

REPORT INFORMATION
  Report Type: 
  Country: None (occurrence: None)
  Receive Date: 20100823
  Receipt Date: 20100810
  Transmission Date: 20110219
  Serious: Yes (Hospitalization)
  Sender: FDA-Public Use
  Company Number: JP-GILEAD-2010-0031024

PATIENT
  Sex: Male

DRUGS (12)
  1. TRUVADA [Suspect]
     Indication: HIV INFECTION
     Route: 048
     Dates: start: 20071228, end: 20080601
  2. ISENTRESS [Suspect]
     Indication: HIV INFECTION
     Route: 048
     Dates: start: 20081211, end: 20090903
  3. STOCRIN [Concomitant]
     Indication: HIV INFECTION
     Dates: start: 20071228, end: 20080601
  4. COTRIM [Concomitant]
     Indication: HIV INFECTION
     Dates: start: 20080401, end: 20090806
  5. DIFLUCAN [Concomitant]
     Dates: start: 20080401, end: 20090101
  6. MYSLEE [Concomitant]
     Dates: start: 20080910, end: 20090801
  7. ANAFRANIL [Concomitant]
     Dates: start: 20090220, end: 20090801
  8. BENZALIN [Concomitant]
     Dates: start: 20090116, end: 20090801
  9. PROMETHAZINE HYDROCHLORIDE [Concomitant]
     Dates: start: 20090220, end: 20090801
  10. LUVOX [Concomitant]
     Dates: start: 20090220, end: 20090801
  11. RISPERDAL [Concomitant]
     Dates: start: 20090317, end: 20090801
  12. TASMOLIN [Concomitant]
     Dates: start: 20090317, end: 20090801

REACTIONS (3)
  - DEPRESSION [None]
  - INSOMNIA [None]
  - OVERDOSE [None]
